FAERS Safety Report 14879696 (Version 1)
Quarter: 2018Q2

REPORT INFORMATION
  Report Type: Spontaneous
  Country: DE (occurrence: DE)
  Receive Date: 20180511
  Receipt Date: 20180511
  Transmission Date: 20180711
  Serious: Yes (Death, Hospitalization, Other)
  Sender: FDA-Public Use
  Company Number: DE-CONCORDIA PHARMACEUTICALS INC.-E2B_00011612

PATIENT
  Age: 73 Year
  Sex: Male

DRUGS (24)
  1. VINCRISTINE [Suspect]
     Active Substance: VINCRISTINE
     Indication: COMPOSITE LYMPHOMA
     Dosage: Q2W (14 DAYS CYCLE)
     Route: 065
     Dates: start: 2015
  2. FILGRASTINE [Suspect]
     Active Substance: FILGRASTIM
     Indication: LEUKOPENIA
  3. OXALIPLATIN. [Suspect]
     Active Substance: OXALIPLATIN
     Indication: COMPOSITE LYMPHOMA
     Dosage: UNK, CYCLIC
     Route: 065
  4. PREDNISOLONE. [Suspect]
     Active Substance: PREDNISOLONE
     Indication: COMPOSITE LYMPHOMA
     Dosage: Q2W ((14 DAYS CYCLE)
     Route: 065
  5. ETOPOSIDE. [Suspect]
     Active Substance: ETOPOSIDE
     Indication: COMPOSITE LYMPHOMA
  6. GEMCITABINE [Suspect]
     Active Substance: GEMCITABINE\GEMCITABINE HYDROCHLORIDE
     Indication: COMPOSITE LYMPHOMA
     Dosage: UNK, CYCLIC
     Route: 065
  7. BENDAMUSTINE [Suspect]
     Active Substance: BENDAMUSTINE
     Indication: LEUKOPENIA
  8. DOXORUBICIN [Suspect]
     Active Substance: DOXORUBICIN
     Indication: B-CELL LYMPHOMA
     Dosage: 20 MG/M2, UNK
     Route: 065
     Dates: start: 201409
  9. METOPROLOL SUCCINATE. [Concomitant]
     Active Substance: METOPROLOL SUCCINATE
     Indication: PRODUCT USED FOR UNKNOWN INDICATION
     Route: 065
  10. ETOPOSIDE. [Suspect]
     Active Substance: ETOPOSIDE
     Indication: LYMPHOMA
     Dosage: UNK
     Route: 065
     Dates: start: 201506, end: 201507
  11. BENDAMUSTINE [Suspect]
     Active Substance: BENDAMUSTINE
     Indication: COMPOSITE LYMPHOMA
     Dosage: UNK, CYCLIC
     Route: 065
  12. FILGRASTINE [Suspect]
     Active Substance: FILGRASTIM
     Indication: PRODUCT USED FOR UNKNOWN INDICATION
     Dosage: 48 MIU, QD
     Route: 058
     Dates: start: 2015
  13. FILGRASTINE [Suspect]
     Active Substance: FILGRASTIM
     Indication: COMPOSITE LYMPHOMA
  14. PIXANTRONE [Suspect]
     Active Substance: PIXANTRONE
     Indication: PRODUCT USED FOR UNKNOWN INDICATION
     Dosage: UNK
     Route: 065
     Dates: start: 201506, end: 201507
  15. PIXANTRONE [Suspect]
     Active Substance: PIXANTRONE
     Indication: LEUKOPENIA
  16. NAFTIDROFURYL OXALATE [Concomitant]
     Active Substance: NAFRONYL OXALATE
     Indication: PRODUCT USED FOR UNKNOWN INDICATION
     Route: 065
  17. 4-AMINOSALICYLIC ACID [Concomitant]
     Active Substance: AMINOSALICYLIC ACID
     Indication: PRODUCT USED FOR UNKNOWN INDICATION
     Route: 065
  18. DOXORUBICIN [Suspect]
     Active Substance: DOXORUBICIN
     Indication: COMPOSITE LYMPHOMA
  19. ONDANSETRON [Concomitant]
     Active Substance: ONDANSETRON
     Indication: PREMEDICATION
     Dosage: 8 MG, (PER SESSION)
     Route: 065
  20. PREDNISOLONE. [Suspect]
     Active Substance: PREDNISOLONE
     Indication: LEUKOPENIA
  21. CYCLOPHOSPHAMIDE. [Suspect]
     Active Substance: CYCLOPHOSPHAMIDE
     Indication: COMPOSITE LYMPHOMA
     Dosage: UNK, Q2W (14 DAYS CYCLE)
     Route: 065
     Dates: start: 2015
  22. CYCLOPHOSPHAMIDE. [Suspect]
     Active Substance: CYCLOPHOSPHAMIDE
     Indication: LEUKOPENIA
  23. VINCRISTINE [Suspect]
     Active Substance: VINCRISTINE
     Indication: LEUKOPENIA
  24. DOXORUBICIN [Suspect]
     Active Substance: DOXORUBICIN
     Indication: PERIPHERAL T-CELL LYMPHOMA UNSPECIFIED

REACTIONS (15)
  - Product use in unapproved indication [Fatal]
  - Off label use [Fatal]
  - Peripheral T-cell lymphoma unspecified [Fatal]
  - Skin toxicity [Fatal]
  - Bone marrow toxicity [Fatal]
  - Rash [Fatal]
  - Rash maculo-papular [Fatal]
  - Rash papular [Fatal]
  - B-cell lymphoma [Fatal]
  - Pneumonia [Fatal]
  - Disease progression [Fatal]
  - Leukopenia [Fatal]
  - Drug eruption [Fatal]
  - Palmar-plantar erythrodysaesthesia syndrome [Fatal]
  - Pyrexia [Fatal]

NARRATIVE: CASE EVENT DATE: 2014
